FAERS Safety Report 5451164-2 (Version None)
Quarter: 2007Q3

REPORT INFORMATION
  Report Type: 
  Country: None (occurrence: None)
  Receive Date: 20070802
  Receipt Date: 20061004
  Transmission Date: 20080115
  Serious: Yes (Other)
  Sender: FDA-Public Use
  Company Number: 2007020235

PATIENT
  Age: 37 Year
  Sex: Female

DRUGS (4)
  1. IRINOTECAN HCL [Suspect]
     Indication: METASTATIC RENAL CELL CARCINOMA
  2. FLUOROURACIL [Suspect]
     Indication: METASTATIC RENAL CELL CARCINOMA
  3. LEUCOVORIN CALCIUM [Suspect]
     Indication: METASTATIC RENAL CELL CARCINOMA
  4. AVASTIN [Suspect]
     Indication: METASTATIC RENAL CELL CARCINOMA

REACTIONS (3)
  - DISEASE PROGRESSION [None]
  - METASTATIC RENAL CELL CARCINOMA [None]
  - VOMITING [None]
